FAERS Safety Report 7076441-3 (Version None)
Quarter: 2010Q4

REPORT INFORMATION
  Report Type: 
  Country: None (occurrence: None)
  Receive Date: 20101101
  Receipt Date: 20101019
  Transmission Date: 20110411
  Serious: Yes (Other)
  Sender: FDA-Public Use
  Company Number: GR-JNJFOC-20101006048

PATIENT
  Age: 46 Year
  Sex: Male

DRUGS (2)
  1. INFLIXIMAB, RECOMBINANT [Suspect]
     Indication: PSORIASIS
     Dosage: ON THERAPY FOR ALMOST 3 YEARS
     Route: 042
  2. METHOTREXATE [Concomitant]
     Indication: PSORIASIS

REACTIONS (2)
  - PSORIASIS [None]
  - RETINAL VEIN OCCLUSION [None]
